FAERS Safety Report 9621032 (Version 2)
Quarter: 2013Q4

REPORT INFORMATION
  Report Type: Report from Study
  Country: CA (occurrence: CA)
  Receive Date: 20131015
  Receipt Date: 20131015
  Transmission Date: 20140711
  Serious: Yes (Other)
  Sender: FDA-Public Use
  Company Number: CA-BAYER-2013-078748

PATIENT
  Age: 64 Year
  Sex: Female

DRUGS (2)
  1. STIVARGA [Suspect]
     Indication: COLORECTAL CANCER METASTATIC
     Dosage: 160 MG, QD
     Route: 048
     Dates: start: 20130604, end: 20130624
  2. STIVARGA [Suspect]
     Indication: COLORECTAL CANCER METASTATIC
     Dosage: 120 MG, ONCE A DAY
     Route: 048

REACTIONS (10)
  - Pain in extremity [Recovering/Resolving]
  - Burning sensation [Recovering/Resolving]
  - Abasia [Recovering/Resolving]
  - Burning sensation [None]
  - Blood pressure increased [None]
  - Palmar-plantar erythrodysaesthesia syndrome [None]
  - Hyperkeratosis [None]
  - Rash [None]
  - Pain in extremity [None]
  - Limb discomfort [None]
